FAERS Safety Report 25060553 (Version 2)
Quarter: 2025Q1

REPORT INFORMATION
  Report Type: Report from Study
  Country: US (occurrence: US)
  Receive Date: 20250310
  Receipt Date: 20250321
  Transmission Date: 20250409
  Serious: Yes (Other)
  Sender: ABBVIE
  Company Number: US-ABBVIE-6165198

PATIENT
  Age: 75 Year
  Sex: Female

DRUGS (1)
  1. RINVOQ [Suspect]
     Active Substance: UPADACITINIB
     Indication: Crohn^s disease
     Route: 048
     Dates: start: 20241129

REACTIONS (7)
  - Haemoglobin decreased [Not Recovered/Not Resolved]
  - Vitamin D deficiency [Unknown]
  - Blood iron decreased [Not Recovered/Not Resolved]
  - Fatigue [Unknown]
  - Vitamin D decreased [Recovered/Resolved]
  - Condition aggravated [Unknown]
  - Drug specific antibody present [Unknown]

NARRATIVE: CASE EVENT DATE: 20250128
